FAERS Safety Report 4915448-6 (Version None)
Quarter: 2006Q1

REPORT INFORMATION
  Report Type: 
  Country: None (occurrence: None)
  Receive Date: 20060217
  Receipt Date: 20050607
  Transmission Date: 20060701
  Serious: Yes (Hospitalization, Disabling)
  Sender: FDA-Public Use
  Company Number: US-MERCK-0506USA01101

PATIENT
  Age: 43 Year
  Sex: Male
  Weight: 80 kg

DRUGS (5)
  1. VIOXX [Suspect]
     Indication: BACK PAIN
     Route: 048
     Dates: start: 19990501, end: 20040930
  2. GABITRIL [Concomitant]
     Route: 065
  3. LORCET-HD [Concomitant]
     Route: 065
  4. OXYCONTIN [Concomitant]
     Route: 065
  5. [THERAPY UNSPECIFIED] [Concomitant]
     Route: 065

REACTIONS (7)
  - BACK INJURY [None]
  - CARPAL TUNNEL SYNDROME [None]
  - EMOTIONAL DISTRESS [None]
  - MENTAL DISORDER [None]
  - MYOCARDIAL INFARCTION [None]
  - SPINAL DISORDER [None]
  - SPINAL LAMINECTOMY [None]
